FAERS Safety Report 5805197-4 (Version None)
Quarter: 2008Q3

REPORT INFORMATION
  Report Type: 
  Country: None (occurrence: None)
  Receive Date: 20080709
  Receipt Date: 20080703
  Transmission Date: 20090109
  Serious: Yes (Life-Threatening, Hospitalization)
  Sender: FDA-Public Use
  Company Number: GB-ABBOTT-08P-167-0461229-00

PATIENT
  Age: 54 Year
  Sex: Female

DRUGS (11)
  1. ERYTHROMYCIN BASE [Suspect]
     Indication: INFECTION
     Route: 048
     Dates: start: 20070606, end: 20070612
  2. BUPRENORPHINE HCL [Concomitant]
     Indication: PAIN
  3. CIPROFLOXACIN [Concomitant]
     Indication: INFECTION
  4. CITALOPRAM HYDROBROMIDE [Concomitant]
     Indication: DRUG USE FOR UNKNOWN INDICATION
  5. DEXAMETHASONE [Concomitant]
     Indication: DRUG USE FOR UNKNOWN INDICATION
  6. DICLOFENAC SODIUM [Concomitant]
     Indication: DRUG USE FOR UNKNOWN INDICATION
  7. DOCUSATE [Concomitant]
     Indication: DRUG USE FOR UNKNOWN INDICATION
  8. LANSOPRAZOLE [Concomitant]
     Indication: PROPHYLAXIS AGAINST GASTROINTESTINAL ULCER
  9. NULYTELY [Concomitant]
     Indication: DRUG USE FOR UNKNOWN INDICATION
  10. ACETAMINOPHEN [Concomitant]
     Indication: PAIN
  11. TAMOXIFEN CITRATE [Concomitant]
     Indication: BREAST CANCER

REACTIONS (2)
  - NEPHRITIS INTERSTITIAL [None]
  - RENAL FAILURE ACUTE [None]
